FAERS Safety Report 6919503-0 (Version None)
Quarter: 2010Q3

REPORT INFORMATION
  Report Type: 
  Country: None (occurrence: None)
  Receive Date: 20100810
  Receipt Date: 20100810
  Transmission Date: 20110219
  Serious: No
  Sender: FDA-Public Use
  Company Number: None

PATIENT
  Age: 39 Year
  Sex: Female

DRUGS (17)
  1. COMBIVIR [Suspect]
     Dates: start: 20030901, end: 20040825
  2. VIRACEPT [Suspect]
     Dates: start: 20030901, end: 20040825
  3. ACYCLOVIR [Concomitant]
  4. POTASSIUM CHLORIDE [Concomitant]
  5. PAXIL [Concomitant]
  6. LORTAB [Concomitant]
  7. LASIX [Concomitant]
  8. TRAZODONE HCL [Concomitant]
  9. NAPROSYN [Concomitant]
  10. DAPSONE [Concomitant]
  11. LEXAPRO [Concomitant]
  12. PHENARGAN [Concomitant]
  13. ZANTAC [Concomitant]
  14. CENTRUM [Concomitant]
  15. PERIACTIN [Concomitant]
  16. ALBUTEROL [Concomitant]
  17. VIT B12 [Concomitant]

REACTIONS (9)
  - ACIDOSIS [None]
  - CANDIDURIA [None]
  - HYDRONEPHROSIS [None]
  - JAUNDICE [None]
  - NEPHROLITHIASIS [None]
  - OEDEMA PERIPHERAL [None]
  - RENAL FAILURE [None]
  - RESPIRATORY FAILURE [None]
  - STAPHYLOCOCCUS TEST POSITIVE [None]
